FAERS Safety Report 11245282 (Version 4)
Quarter: 2015Q4

REPORT INFORMATION
  Report Type: Spontaneous
  Country: US (occurrence: US)
  Receive Date: 20150707
  Receipt Date: 20151130
  Transmission Date: 20160304
  Serious: Yes (Hospitalization)
  Sender: FDA-Public Use
  Company Number: US-PFIZER INC-2015222161

PATIENT
  Age: 68 Year
  Sex: Female
  Weight: 83.45 kg

DRUGS (2)
  1. AROMASIN [Suspect]
     Active Substance: EXEMESTANE
     Indication: BREAST CANCER
     Dosage: 25 MG, 1X/DAY (WITH MEAL)
     Route: 048
     Dates: start: 201506, end: 20150611
  2. AROMASIN [Suspect]
     Active Substance: EXEMESTANE
     Indication: HAEMATOPOIETIC NEOPLASM
     Dosage: 25 MG, 1X/DAY (WITH MEAL)
     Route: 048
     Dates: start: 201502, end: 201506

REACTIONS (8)
  - Headache [Not Recovered/Not Resolved]
  - Decreased appetite [Recovered/Resolved]
  - Vomiting [Recovered/Resolved]
  - Drug intolerance [Unknown]
  - Nervousness [Recovered/Resolved]
  - Nausea [Recovered/Resolved]
  - Blood creatinine increased [Recovered/Resolved]
  - Tremor [Not Recovered/Not Resolved]

NARRATIVE: CASE EVENT DATE: 20150501
